FAERS Safety Report 24018623 (Version 6)
Quarter: 2024Q3

REPORT INFORMATION
  Report Type: Spontaneous
  Country: US (occurrence: US)
  Receive Date: 20240627
  Receipt Date: 20240709
  Transmission Date: 20241017
  Serious: Yes (Other)
  Sender: ROCHE
  Company Number: US-ROCHE-10000001592

PATIENT
  Age: 36 Year
  Sex: Female

DRUGS (1)
  1. ACTEMRA ACTPEN [Suspect]
     Active Substance: TOCILIZUMAB
     Indication: Rheumatoid arthritis
     Dosage: 180 MG / 1 ML
     Route: 058

REACTIONS (4)
  - Rash pruritic [Unknown]
  - Dyspepsia [Unknown]
  - Abdominal pain [Recovered/Resolved]
  - Alopecia [Unknown]
